FAERS Safety Report 14508443 (Version 1)
Quarter: 2018Q1

REPORT INFORMATION
  Report Type: Spontaneous
  Country: US (occurrence: US)
  Receive Date: 20180209
  Receipt Date: 20180209
  Transmission Date: 20180509
  Serious: No
  Sender: FDA-Public Use
  Company Number: US-ENDO PHARMACEUTICALS INC-2017-002723

PATIENT
  Sex: Female

DRUGS (6)
  1. METHYLPREDNISOLONE TABLETS 4MG [Suspect]
     Active Substance: METHYLPREDNISOLONE
     Dosage: 5 DF, 5 PILLS DAY 2
     Route: 048
  2. METHYLPREDNISOLONE TABLETS 4MG [Suspect]
     Active Substance: METHYLPREDNISOLONE
     Dosage: 1 DF, A PILL FOR DAY 6
     Route: 048
  3. METHYLPREDNISOLONE TABLETS 4MG [Suspect]
     Active Substance: METHYLPREDNISOLONE
     Dosage: 3 DF, 3 PILLS DAY 4
     Route: 048
  4. METHYLPREDNISOLONE TABLETS 4MG [Suspect]
     Active Substance: METHYLPREDNISOLONE
     Dosage: 2 DF, 2 PILLS DAY 5
     Route: 048
  5. METHYLPREDNISOLONE TABLETS 4MG [Suspect]
     Active Substance: METHYLPREDNISOLONE
     Dosage: 4 DF, 4 PILLS DAY 3
     Route: 048
  6. METHYLPREDNISOLONE TABLETS 4MG [Suspect]
     Active Substance: METHYLPREDNISOLONE
     Indication: HYPERSENSITIVITY
     Dosage: 6 DF, 6 PILLS DAY 1
     Route: 048

REACTIONS (2)
  - Burning sensation [Unknown]
  - Swelling face [Recovering/Resolving]
